FAERS Safety Report 9152286 (Version 1)
Quarter: 2013Q1

REPORT INFORMATION
  Report Type: Spontaneous
  Country: US (occurrence: US)
  Receive Date: 20130308
  Receipt Date: 20130308
  Transmission Date: 20140127
  Serious: Yes (Other)
  Sender: FDA-Public Use
  Company Number: US-B.I. PHARMACEUTICALS,INC./RIDGEFIELD-2013-BI-05644BP

PATIENT
  Sex: Male

DRUGS (2)
  1. PRADAXA [Suspect]
     Indication: CARDIOMYOPATHY
     Dosage: 300 MG
     Route: 048
     Dates: start: 2011, end: 201302
  2. PRADAXA [Suspect]
     Indication: THERAPEUTIC PROCEDURE
     Dosage: 150 MG
     Route: 048
     Dates: start: 201302, end: 201302

REACTIONS (1)
  - Gastrointestinal haemorrhage [Unknown]
